FAERS Safety Report 7257543-5 (Version None)
Quarter: 2011Q1

REPORT INFORMATION
  Report Type: 
  Country: None (occurrence: None)
  Receive Date: 20110129
  Receipt Date: 20100713
  Transmission Date: 20110831
  Serious: No
  Sender: FDA-Public Use
  Company Number: US-ABBOTT-10P-163-0649098-00

PATIENT
  Age: 55 Year
  Sex: Female

DRUGS (6)
  1. TRICOR [Concomitant]
  2. FOLIC ACID [Concomitant]
  3. HUMIRA [Suspect]
     Indication: RHEUMATOID ARTHRITIS
     Dates: start: 20100326
  4. RELAFEN [Concomitant]
  5. TRAMADOL HCL [Concomitant]
  6. PREDNISONE [Concomitant]

REACTIONS (4)
  - INCORRECT DOSE ADMINISTERED [None]
  - DEVICE MALFUNCTION [None]
  - LACERATION [None]
  - INJECTION SITE ERYTHEMA [None]
